FAERS Safety Report 7962615-3 (Version None)
Quarter: 2011Q4

REPORT INFORMATION
  Report Type: 
  Country: None (occurrence: None)
  Receive Date: 20111207
  Receipt Date: 20111125
  Transmission Date: 20120403
  Serious: Yes (Other)
  Sender: FDA-Public Use
  Company Number: JP-JNJFOC-20111111901

PATIENT
  Age: 53 Year
  Sex: Female

DRUGS (2)
  1. REMICADE [Suspect]
     Route: 042
     Dates: start: 20110526
  2. REMICADE [Suspect]
     Indication: PSORIASIS
     Dosage: THIS WAS THE PATIENT'S 5TH ADMINISTRATION
     Route: 042
     Dates: start: 20111027

REACTIONS (1)
  - LUPUS-LIKE SYNDROME [None]
